FAERS Safety Report 20421380 (Version 5)
Quarter: 2023Q4

REPORT INFORMATION
  Report Type: Spontaneous
  Country: US (occurrence: US)
  Receive Date: 20220203
  Receipt Date: 20231129
  Transmission Date: 20240110
  Serious: Yes (Other)
  Sender: FDA-Public Use
  Company Number: US-PFIZER INC-202101144002

PATIENT
  Age: 56 Year
  Sex: Female
  Weight: 100.23 kg

DRUGS (7)
  1. IBRANCE [Suspect]
     Active Substance: PALBOCICLIB
     Indication: Breast cancer female
     Dosage: 125 MG, CYCLIC, (ONCE A DAY, TAKEN 3 CONSECUTIVE WEEKS AND ONE WEEK OFF )
     Route: 048
     Dates: start: 20210628
  2. IBRANCE [Suspect]
     Active Substance: PALBOCICLIB
     Indication: Breast cancer metastatic
     Dosage: 125 MG, CYCLIC (1 DAILY FOR 21 DAYS THEN OFF FOR 7 DAYS)
     Route: 048
     Dates: start: 20210709
  3. FASLODEX [Concomitant]
     Active Substance: FULVESTRANT
     Dosage: UNK, MONTHLY
     Dates: start: 202106
  4. FIBER [Concomitant]
     Dosage: UNK
  5. SERTRALINE [Concomitant]
     Active Substance: SERTRALINE HYDROCHLORIDE
     Dosage: UNK
     Dates: start: 202106
  6. TRAMADOL HCL [Concomitant]
     Active Substance: TRAMADOL HYDROCHLORIDE
     Dosage: 50 MG
  7. XGEVA [Concomitant]
     Active Substance: DENOSUMAB
     Dosage: UNK
     Dates: start: 202204

REACTIONS (12)
  - Back pain [Unknown]
  - Neck pain [Unknown]
  - Chills [Unknown]
  - Influenza like illness [Unknown]
  - Pain in jaw [Recovered/Resolved]
  - Muscle spasms [Not Recovered/Not Resolved]
  - Pain [Unknown]
  - Nausea [Unknown]
  - Mouth ulceration [Unknown]
  - Ear pain [Unknown]
  - Dysphonia [Unknown]
  - Weight increased [Recovered/Resolved]

NARRATIVE: CASE EVENT DATE: 20210101
